FAERS Safety Report 9689502 (Version 1)
Quarter: 2013Q4

REPORT INFORMATION
  Report Type: Spontaneous
  Country: ES (occurrence: ES)
  Receive Date: 20131114
  Receipt Date: 20131114
  Transmission Date: 20140711
  Serious: Yes (Hospitalization, Other)
  Sender: FDA-Public Use
  Company Number: ES-ROXANE LABORATORIES, INC.-2013-RO-01809RO

PATIENT
  Age: 57 Year
  Sex: Male

DRUGS (4)
  1. IMIPRAMINE PAMOATE [Suspect]
     Indication: FRONTOTEMPORAL DEMENTIA
     Dosage: 75 MG
  2. LORAZEPAM [Suspect]
     Indication: FRONTOTEMPORAL DEMENTIA
     Dosage: 15 MG
  3. ARIPIPRAZOLE [Suspect]
     Indication: FRONTOTEMPORAL DEMENTIA
     Dosage: 15 MG
  4. LORMETAZEPAM [Suspect]
     Indication: FRONTOTEMPORAL DEMENTIA
     Dosage: 2 MG

REACTIONS (2)
  - Neuroleptic malignant syndrome [Recovered/Resolved]
  - Respiratory failure [Recovered/Resolved]
